FAERS Safety Report 5090658-9 (Version None)
Quarter: 2006Q3

REPORT INFORMATION
  Report Type: 
  Country: None (occurrence: None)
  Receive Date: 20060823
  Receipt Date: 20060816
  Transmission Date: 20061208
  Serious: Yes (Hospitalization, Other)
  Sender: FDA-Public Use
  Company Number: 2006-07-0229

PATIENT
  Age: 54 Year
  Sex: Male

DRUGS (5)
  1. PEG-INTRON [Suspect]
     Indication: HEPATITIS C
     Dosage: SUBCUTANEOUS
     Route: 058
     Dates: start: 20060524, end: 20060630
  2. AMITRIPTYLINE HCL [Concomitant]
  3. CITALOPRAM HYDROBROMIDE [Concomitant]
  4. CLONIDINE HCL [Concomitant]
  5. LISINOPRIL [Concomitant]

REACTIONS (8)
  - CONTUSION [None]
  - DRUG DEPENDENCE [None]
  - FLUID INTAKE REDUCED [None]
  - HEPATIC FAILURE [None]
  - HYPOTENSION [None]
  - ILL-DEFINED DISORDER [None]
  - MEMORY IMPAIRMENT [None]
  - OVERDOSE [None]
